FAERS Safety Report 21701584 (Version 1)
Quarter: 2022Q4

REPORT INFORMATION
  Report Type: Spontaneous
  Country: US (occurrence: None)
  Receive Date: 20221208
  Receipt Date: 20221208
  Transmission Date: 20230113
  Serious: Yes (Disabling)
  Sender: FDA-Public Use
  Company Number: None

PATIENT
  Sex: 0

DRUGS (1)
  1. PAXLOVID [Suspect]
     Active Substance: NIRMATRELVIR\RITONAVIR
     Indication: COVID-19 treatment
     Dosage: FREQUENCY : TWICE A DAY;?
     Route: 048
     Dates: start: 20221128, end: 20221202

REACTIONS (4)
  - COVID-19 [None]
  - Rebound effect [None]
  - SARS-CoV-2 test negative [None]
  - SARS-CoV-2 test positive [None]

NARRATIVE: CASE EVENT DATE: 20221207
